FAERS Safety Report 19587379 (Version 1)
Quarter: 2021Q3

REPORT INFORMATION
  Report Type: Report from Study
  Country: US (occurrence: US)
  Receive Date: 20210721
  Receipt Date: 20210721
  Transmission Date: 20211014
  Serious: Yes (Hospitalization)
  Sender: FDA-Public Use
  Company Number: US-SA-2021SA124483

PATIENT
  Age: 70 Year
  Sex: Female

DRUGS (2)
  1. DUPILUMAB [Suspect]
     Active Substance: DUPILUMAB
     Indication: DERMATITIS ALLERGIC
     Dosage: 400 MG, 1X
     Route: 058
     Dates: start: 20190725, end: 20190725
  2. DUPILUMAB [Suspect]
     Active Substance: DUPILUMAB
     Indication: DERMATITIS ATOPIC
     Dosage: 200 MG, QOW
     Route: 058

REACTIONS (3)
  - Dehydration [Unknown]
  - Off label use [Unknown]
  - Blood electrolytes decreased [Unknown]

NARRATIVE: CASE EVENT DATE: 20190725
